FAERS Safety Report 4714694-4 (Version None)
Quarter: 2005Q3

REPORT INFORMATION
  Report Type: 
  Country: None (occurrence: None)
  Receive Date: 20050714
  Receipt Date: 20050714
  Transmission Date: 20060218
  Serious: Yes (Hospitalization)
  Sender: FDA-Public Use
  Company Number: None

PATIENT
  Age: 67 Year
  Sex: Female
  Weight: 60.782 kg

DRUGS (1)
  1. FLEXERIL [Suspect]
     Dosage: 10 MG

REACTIONS (1)
  - MENTAL STATUS CHANGES [None]
